FAERS Safety Report 13743708 (Version 4)
Quarter: 2018Q1

REPORT INFORMATION
  Report Type: Report from Study
  Country: US (occurrence: BR)
  Receive Date: 20170711
  Receipt Date: 20180112
  Transmission Date: 20180508
  Serious: Yes (Hospitalization, Other)
  Sender: FDA-Public Use
  Company Number: US-SUNOVION-2017SUN002986

PATIENT
  Age: 85 Year
  Sex: Female
  Weight: 42 kg

DRUGS (9)
  1. SERTRALINE (NGX) [Suspect]
     Active Substance: SERTRALINE HYDROCHLORIDE
     Indication: DEPRESSION
     Dosage: UNK, REGIMEN #1
     Route: 065
  2. INDACATEROL [Suspect]
     Active Substance: INDACATEROL
     Indication: EMPHYSEMA
     Dosage: UNK, UNK
     Route: 055
  3. SERTRALINE (NGX) [Suspect]
     Active Substance: SERTRALINE HYDROCHLORIDE
     Dosage: UNK
  4. BUSONID [Concomitant]
     Active Substance: BUDESONIDE
     Dosage: UNK
     Dates: start: 2017
  5. BRINTELLIX [Concomitant]
     Active Substance: VORTIOXETINE HYDROBROMIDE
     Dosage: UNK
     Dates: start: 201705
  6. ASA [Concomitant]
     Active Substance: ASPIRIN
     Dosage: UNK
  7. INDACATEROL AND GLYCOPYRROLATE [Suspect]
     Active Substance: GLYCOPYRROLATE\INDACATEROL MALEATE
     Indication: CHRONIC OBSTRUCTIVE PULMONARY DISEASE
  8. INDACATEROL AND GLYCOPYRROLATE [Suspect]
     Active Substance: GLYCOPYRROLATE\INDACATEROL MALEATE
     Indication: EMPHYSEMA
     Dosage: 1 DF (GLYCOPYRRONIUM BROMIDE 50 UG/INDACTEROL 110 UG), QD
     Route: 055
     Dates: start: 2017
  9. MEMANTINE HYDROCHLORIDE. [Concomitant]
     Active Substance: MEMANTINE HYDROCHLORIDE
     Dosage: UNK

REACTIONS (17)
  - Dementia [Unknown]
  - Concomitant disease aggravated [Unknown]
  - Visual impairment [Unknown]
  - Cough [Recovered/Resolved]
  - Agitation [Unknown]
  - Malaise [Unknown]
  - Distractibility [Unknown]
  - General physical health deterioration [Recovered/Resolved]
  - Urinary tract infection [Recovered/Resolved]
  - Abnormal behaviour [Recovered/Resolved]
  - Pneumonia [Recovered/Resolved]
  - Deafness [Unknown]
  - Depression [Unknown]
  - Dysstasia [Recovered/Resolved]
  - Eating disorder [Recovered/Resolved]
  - Sensitivity to weather change [Recovered/Resolved]
  - Aphasia [Unknown]

NARRATIVE: CASE EVENT DATE: 201705
